FAERS Safety Report 25570638 (Version 1)
Quarter: 2025Q3

REPORT INFORMATION
  Report Type: Report from Study
  Country: US (occurrence: US)
  Receive Date: 20250717
  Receipt Date: 20250717
  Transmission Date: 20251020
  Serious: Yes (Hospitalization)
  Sender: ROCHE
  Company Number: US-ROCHE-10000313969

PATIENT
  Age: 95 Year
  Sex: Female
  Weight: 45 kg

DRUGS (21)
  1. XOLAIR PFS [Suspect]
     Active Substance: OMALIZUMAB
     Indication: Asthma
     Dosage: INJECT 300MG
     Route: 058
     Dates: start: 20250124, end: 20250418
  2. XOLAIR PFS [Suspect]
     Active Substance: OMALIZUMAB
     Dosage: INJECT 300MG
     Route: 058
     Dates: start: 20240524
  3. XOLAIR PFS [Suspect]
     Active Substance: OMALIZUMAB
     Dosage: INJECT 300MG
     Route: 058
     Dates: start: 20241018, end: 20250314
  4. XOLAIR PFS [Suspect]
     Active Substance: OMALIZUMAB
     Dosage: INJECT 300MG
     Route: 058
     Dates: start: 20250211, end: 20250314
  5. Guaifenesin 600 mg ER tablet [Concomitant]
     Route: 048
  6. PREDNISONE [Concomitant]
     Active Substance: PREDNISONE
     Route: 048
  7. PREDNISONE [Concomitant]
     Active Substance: PREDNISONE
     Route: 048
  8. PREDNISONE [Concomitant]
     Active Substance: PREDNISONE
     Route: 048
     Dates: start: 20250310, end: 20250322
  9. PREDNISONE [Concomitant]
     Active Substance: PREDNISONE
     Route: 048
  10. albuterol 90 mcg/actuation inhaler [Concomitant]
     Indication: Wheezing
     Dosage: INHALE 2 PUFFS EVERY 4 HOURS AS NEEDED FOR WHEEZING.
     Dates: start: 20250310
  11. albuterol 90 mcg/actuation inhaler [Concomitant]
     Indication: Dyspnoea
  12. ATORVASTATIN CALCIUM [Concomitant]
     Active Substance: ATORVASTATIN CALCIUM
     Dosage: TAKE 1 TABLET BY MOUTH DAILY.
     Route: 048
     Dates: start: 20250218
  13. Budesonide-Formoterol 160-4.5 mcg/actuation inhaler [Concomitant]
     Dosage: INHALE 2 PUFFS TWICE DAILY.
     Dates: start: 20250310
  14. Calcium-Vitamin D3 500-200 mg tablet [Concomitant]
     Dosage: TAKE 1 TABLET BY MOUTH DAILY AT NOON.
     Route: 048
     Dates: start: 20240506
  15. Cromolyn 4% Ophthalmic Solution [Concomitant]
     Route: 047
     Dates: start: 20200813
  16. Famotidine 20 mg tablet [Concomitant]
     Dosage: TAKE 1 TABLET BY MOUTH TWICE DAILY (MORNING AND EVENING)
     Route: 048
     Dates: start: 20250103, end: 20250624
  17. Fluticasone Propionate 50 mcg/actuation nasal spray [Concomitant]
     Dates: start: 20250110, end: 20250530
  18. FUROSEMIDE [Concomitant]
     Active Substance: FUROSEMIDE
     Dosage: TAKE 1 TABLET (20 MG) BY MOUTH DAILY AS NEEDED FOR SWELLING, UP TO 20 DOSES.
     Dates: start: 20241107, end: 20250502
  19. PROLIA [Concomitant]
     Active Substance: DENOSUMAB
     Dosage: TO BE ADMINISTERED IN PHYSICIAN OFFICE: INJECT 1 SYRINGE SUBCUTANEOUSLY ONCE EVERY 6 MONTHS.?STORE R
     Route: 058
     Dates: start: 20241206, end: 20250314
  20. PROLIA [Concomitant]
     Active Substance: DENOSUMAB
     Dosage: 60 MG, SUBCUTANEOUS, ONCE, REMOVE FROM THE REFRIGERATOR AND BRING SOLUTION TO ROOM TEMPERATURE BY ST
     Route: 058
     Dates: start: 20241022
  21. TRAZODONE [Concomitant]
     Active Substance: TRAZODONE HYDROCHLORIDE
     Route: 048
     Dates: start: 20250218, end: 20250331

REACTIONS (11)
  - Asthma [Not Recovered/Not Resolved]
  - Essential hypertension [Not Recovered/Not Resolved]
  - Hypothyroidism [Not Recovered/Not Resolved]
  - Acute respiratory failure [Not Recovered/Not Resolved]
  - Sinus bradycardia [Not Recovered/Not Resolved]
  - Acute kidney injury [Not Recovered/Not Resolved]
  - Aspartate aminotransferase increased [Unknown]
  - Blood urea increased [Unknown]
  - Haemoglobin decreased [Unknown]
  - Haematocrit decreased [Unknown]
  - Blood creatinine increased [Unknown]
